FAERS Safety Report 7878601-8 (Version None)
Quarter: 2011Q4

REPORT INFORMATION
  Report Type: 
  Country: None (occurrence: None)
  Receive Date: 20111101
  Receipt Date: 20111101
  Transmission Date: 20120403
  Serious: No
  Sender: FDA-Public Use
  Company Number: None

PATIENT
  Sex: Female
  Weight: 51.255 kg

DRUGS (1)
  1. BONIVA [Suspect]
     Indication: OSTEOPENIA
     Dosage: 1
     Route: 048
     Dates: start: 20100205, end: 20110209

REACTIONS (3)
  - MUSCLE SPASMS [None]
  - INSOMNIA [None]
  - PAIN [None]
